FAERS Safety Report 5926018-5 (Version None)
Quarter: 2008Q4

REPORT INFORMATION
  Report Type: 
  Country: None (occurrence: None)
  Receive Date: 20081021
  Receipt Date: 20081010
  Transmission Date: 20090506
  Serious: Yes (Hospitalization)
  Sender: FDA-Public Use
  Company Number: US-WYE-H06329708

PATIENT
  Sex: Female

DRUGS (5)
  1. PRISTIQ [Suspect]
     Indication: MAJOR DEPRESSION
     Route: 048
     Dates: start: 20080714, end: 20080919
  2. TRAZODONE HCL [Concomitant]
  3. NORVASC [Concomitant]
  4. CLONOPIN [Concomitant]
  5. COZAAR [Concomitant]

REACTIONS (1)
  - HAEMOPTYSIS [None]
